FAERS Safety Report 8694941 (Version 6)
Quarter: 2013Q1

REPORT INFORMATION
  Report Type: Spontaneous
  Country: US (occurrence: US)
  Receive Date: 20120731
  Receipt Date: 20130225
  Transmission Date: 20140127
  Serious: Yes (Hospitalization, Other)
  Sender: FDA-Public Use
  Company Number: US-009507513-1207USA007443

PATIENT
  Sex: Female
  Weight: 77.98 kg

DRUGS (9)
  1. FOSAMAX [Suspect]
     Indication: OSTEOPOROSIS
     Dosage: 70 MG, QW
     Route: 048
     Dates: start: 20010911, end: 200511
  2. FOSAMAX [Suspect]
     Dosage: 70 MG, QW
     Route: 048
     Dates: start: 20060826, end: 200707
  3. BONIVA [Suspect]
     Indication: OSTEOPOROSIS
     Dosage: 150 MG, UNK
     Route: 048
     Dates: start: 20051110, end: 20060713
  4. BONIVA [Suspect]
     Dosage: 150 MG, UNK
     Route: 048
     Dates: start: 20070709, end: 20100510
  5. RECLAST [Suspect]
     Indication: OSTEOPOROSIS
     Dosage: 5 MG, UNK
     Route: 042
     Dates: start: 20090511, end: 20120823
  6. HORMONES (UNSPECIFIED) [Concomitant]
     Indication: PRODUCT USED FOR UNKNOWN INDICATION
     Dosage: UNK
     Dates: start: 1969
  7. PREMARIN [Concomitant]
     Indication: HORMONE REPLACEMENT THERAPY
     Dosage: 9 - 1.25 MG
  8. PREMARIN [Concomitant]
     Indication: OSTEOPOROSIS
  9. MAXIDE [Concomitant]
     Indication: HYPERTENSION
     Dosage: 25 MG, QD
     Dates: start: 20010824

REACTIONS (14)
  - Femur fracture [Unknown]
  - Intramedullary rod insertion [Unknown]
  - Femur fracture [Unknown]
  - Intramedullary rod insertion [Unknown]
  - Cataract operation [Unknown]
  - Hip arthroplasty [Unknown]
  - Vitamin D deficiency [Unknown]
  - Calcium deficiency [Unknown]
  - Cholelithiasis [Unknown]
  - Osteopenia [Unknown]
  - Breast tenderness [Unknown]
  - Pain in extremity [Unknown]
  - Pain in extremity [Unknown]
  - Gastrooesophageal reflux disease [Unknown]
